FAERS Safety Report 16347032 (Version 1)
Quarter: 2019Q2

REPORT INFORMATION
  Report Type: Report from Study
  Country: None (occurrence: US)
  Receive Date: 20190523
  Receipt Date: 20190523
  Transmission Date: 20190711
  Serious: Yes (Other)
  Sender: FDA-Public Use
  Company Number: US-ABBVIE-19K-163-2787770-00

PATIENT
  Sex: Female

DRUGS (2)
  1. HUMIRA [Suspect]
     Active Substance: ADALIMUMAB
     Route: 058
  2. HUMIRA [Suspect]
     Active Substance: ADALIMUMAB
     Indication: HIDRADENITIS
     Route: 058

REACTIONS (11)
  - Muscle spasms [Recovered/Resolved]
  - Rotator cuff syndrome [Recovered/Resolved]
  - Peripheral swelling [Recovered/Resolved]
  - Localised infection [Recovered/Resolved]
  - Product storage error [Recovered/Resolved]
  - Sepsis [Recovered/Resolved]
  - Skin discolouration [Recovered/Resolved]
  - Multiple organ dysfunction syndrome [Recovered/Resolved]
  - Incorrect dose administered [Recovered/Resolved]
  - Procedural complication [Recovered/Resolved]
  - Injection site pain [Recovered/Resolved]
